FAERS Safety Report 12314229 (Version 3)
Quarter: 2016Q2

REPORT INFORMATION
  Report Type: Spontaneous
  Country: FR (occurrence: FR)
  Receive Date: 20160428
  Receipt Date: 20160516
  Transmission Date: 20160815
  Serious: Yes (Hospitalization)
  Sender: FDA-Public Use
  Company Number: FR-009507513-1604FRA015713

PATIENT
  Age: 86 Year
  Sex: Female

DRUGS (14)
  1. LERCANIDIPINE [Concomitant]
     Active Substance: LERCANIDIPINE
  2. KARDEGIC [Concomitant]
     Active Substance: ASPIRIN LYSINE
  3. RAMIPRIL. [Concomitant]
     Active Substance: RAMIPRIL
  4. JANUVIA [Suspect]
     Active Substance: SITAGLIPTIN PHOSPHATE
     Indication: DIABETES MELLITUS
     Dosage: 1 DF, QD
     Route: 048
     Dates: start: 2015, end: 20160422
  5. SPECIAFOLDINE [Concomitant]
     Active Substance: FOLIC ACID
  6. LANTUS [Concomitant]
     Active Substance: INSULIN GLARGINE
     Dosage: UNK
  7. DIDROGYL [Concomitant]
     Active Substance: CALCIFEDIOL
  8. DERMOVAL (BETAMETHASONE VALERATE) [Suspect]
     Active Substance: BETAMETHASONE VALERATE
     Dosage: UNK
     Dates: start: 20160422
  9. LEXOMIL [Concomitant]
     Active Substance: BROMAZEPAM
  10. TOPALGIC (SUPROFEN) [Concomitant]
     Active Substance: SUPROFEN
  11. NORMACOL [Concomitant]
     Active Substance: KARAYA GUM
  12. LOXEN [Concomitant]
     Active Substance: NICARDIPINE HYDROCHLORIDE
  13. TRANSIPEG [Concomitant]
     Active Substance: POLYETHYLENE GLYCOL 3350
  14. TIAPRIDAL [Concomitant]
     Active Substance: TIAPRIDE HYDROCHLORIDE

REACTIONS (1)
  - Pemphigoid [Recovered/Resolved]

NARRATIVE: CASE EVENT DATE: 20160418
